FAERS Safety Report 9646423 (Version 6)
Quarter: 2014Q3

REPORT INFORMATION
  Report Type: Report from Study
  Country: IT (occurrence: IT)
  Receive Date: 20131025
  Receipt Date: 20140923
  Transmission Date: 20150326
  Serious: Yes (Hospitalization)
  Sender: FDA-Public Use
  Company Number: IT-ROCHE-1289295

PATIENT
  Age: 72 Year
  Sex: Female
  Weight: 50 kg

DRUGS (16)
  1. CAPECITABINE [Suspect]
     Active Substance: CAPECITABINE
     Indication: HER-2 POSITIVE GASTRIC CANCER
     Dosage: DATE OF LAST DOSE:09/AUG/2013
     Route: 048
     Dates: start: 20130809, end: 20130809
  2. LORAZEPAM. [Concomitant]
     Active Substance: LORAZEPAM
     Indication: INSOMNIA
     Route: 048
     Dates: start: 201107
  3. DISSENTEN [Concomitant]
     Active Substance: LOPERAMIDE HYDROCHLORIDE
     Indication: DIARRHOEA
     Route: 048
     Dates: start: 20131012, end: 20131026
  4. PERIDON (ITALY) [Concomitant]
     Indication: DYSPEPSIA
     Route: 048
     Dates: start: 201306
  5. VERAPAMIL [Concomitant]
     Active Substance: VERAPAMIL HYDROCHLORIDE
     Indication: ATRIAL FIBRILLATION
     Route: 048
     Dates: start: 20131016
  6. NOLPAZA [Concomitant]
     Active Substance: PANTOPRAZOLE SODIUM
     Indication: ULCER
     Route: 048
     Dates: start: 201306
  7. LOPEMID [Concomitant]
     Indication: DIARRHOEA
     Route: 048
     Dates: start: 20130914, end: 20130918
  8. PIPERACILLIN [Concomitant]
     Active Substance: PIPERACILLIN
     Indication: FEBRILE NEUTROPENIA
     Route: 030
     Dates: start: 20131012, end: 20131016
  9. FLUOROURACIL. [Suspect]
     Active Substance: FLUOROURACIL
     Indication: HER-2 POSITIVE GASTRIC CANCER
     Dosage: LAST DOSE PRIOR TO SAE: 26/SEP/2013.
     Route: 042
     Dates: start: 20130905
  10. LEVOPRAID [Concomitant]
     Active Substance: SULPIRIDE
     Indication: DYSPEPSIA
     Route: 048
     Dates: start: 201306
  11. LOPEMID [Concomitant]
     Indication: DIARRHOEA
     Route: 048
     Dates: start: 20131003, end: 20131005
  12. PERTUZUMAB [Suspect]
     Active Substance: PERTUZUMAB
     Indication: HER-2 POSITIVE GASTRIC CANCER
     Dosage: LAST DOSE PRIOR TO SAE : 26/SEP/2013
     Route: 042
     Dates: start: 20130809, end: 20130926
  13. TRASTUZUMAB [Suspect]
     Active Substance: TRASTUZUMAB
     Indication: HER-2 POSITIVE GASTRIC CANCER
     Dosage: LOADING DOSE
     Route: 042
     Dates: start: 20130809, end: 20130809
  14. TRASTUZUMAB [Suspect]
     Active Substance: TRASTUZUMAB
     Dosage: MAINTENANCE DOSE PER PROTOCOL. LAST DOSE PRIOR TO SAE: 26/SEP/2013
     Route: 042
  15. CISPLATIN. [Suspect]
     Active Substance: CISPLATIN
     Indication: HER-2 POSITIVE GASTRIC CANCER
     Dosage: LAST DOSE PRIOR TO SAE: 26/SEP/2013.
     Route: 042
     Dates: start: 20130809
  16. BRUFEN [Concomitant]
     Active Substance: IBUPROFEN
     Indication: ABDOMINAL PAIN
     Route: 048
     Dates: start: 20130724

REACTIONS (2)
  - Syncope [Recovered/Resolved]
  - Head injury [Recovered/Resolved]

NARRATIVE: CASE EVENT DATE: 20131012
